FAERS Safety Report 19355929 (Version 1)
Quarter: 2021Q2

REPORT INFORMATION
  Report Type: Spontaneous
  Country: US (occurrence: US)
  Receive Date: 20210528
  Receipt Date: 20210528
  Transmission Date: 20210717
  Serious: Yes (Hospitalization)
  Sender: FDA-Public Use
  Company Number: None

PATIENT
  Age: 77 Year
  Sex: Male
  Weight: 99.1 kg

DRUGS (1)
  1. YESCARTA [Suspect]
     Active Substance: AXICABTAGENE CILOLEUCEL

REACTIONS (14)
  - Serum ferritin increased [None]
  - Hypophosphataemia [None]
  - Malaise [None]
  - Tendonitis [None]
  - Immune effector cell-associated neurotoxicity syndrome [None]
  - Memory impairment [None]
  - Fall [None]
  - C-reactive protein increased [None]
  - Cytokine release syndrome [None]
  - Transaminases increased [None]
  - Skin laceration [None]
  - Neurotoxicity [None]
  - Haematoma [None]
  - Loss of personal independence in daily activities [None]

NARRATIVE: CASE EVENT DATE: 20210123
